FAERS Safety Report 26039597 (Version 1)
Quarter: 2025Q4

REPORT INFORMATION
  Report Type: Report from Study
  Country: US (occurrence: US)
  Receive Date: 20251113
  Receipt Date: 20251113
  Transmission Date: 20260118
  Serious: Yes (Other)
  Sender: ABBVIE
  Company Number: US-ABBVIE-6540900

PATIENT
  Age: 78 Year
  Sex: Female

DRUGS (1)
  1. CREON [Suspect]
     Active Substance: PANCRELIPASE AMYLASE\PANCRELIPASE LIPASE\PANCRELIPASE PROTEASE
     Indication: Product used for unknown indication
     Route: 048
     Dates: start: 20250215

REACTIONS (4)
  - Rectocele [Recovering/Resolving]
  - Hysterectomy [Recovering/Resolving]
  - Glycosylated haemoglobin increased [Recovered/Resolved]
  - Urinary bladder suspension [Recovering/Resolving]

NARRATIVE: CASE EVENT DATE: 20250101
